FAERS Safety Report 24222581 (Version 1)
Quarter: 2024Q3

REPORT INFORMATION
  Report Type: Spontaneous
  Country: US (occurrence: US)
  Receive Date: 20240819
  Receipt Date: 20240819
  Transmission Date: 20241016
  Serious: No
  Sender: Tarsus Pharmaceuticals
  Company Number: US-TARSUS PHARMACEUTICALS-TSP-US-2024-000303

PATIENT
  Sex: Male

DRUGS (2)
  1. XDEMVY [Suspect]
     Active Substance: LOTILANER
     Indication: Demodex blepharitis
     Dosage: UNK (IN BOTH EYES)
     Route: 047
     Dates: start: 20231013
  2. Optase dry eye intense [Concomitant]
     Indication: Dry eye
     Dosage: UNK
     Route: 065

REACTIONS (5)
  - Ocular rosacea [Unknown]
  - Eye pruritus [Unknown]
  - Erythema of eyelid [Unknown]
  - Demodex blepharitis [Unknown]
  - Disease recurrence [Unknown]
